FAERS Safety Report 5751091-7 (Version None)
Quarter: 2008Q2

REPORT INFORMATION
  Report Type: 
  Country: None (occurrence: None)
  Receive Date: 20080528
  Receipt Date: 20080513
  Transmission Date: 20081010
  Serious: Yes (Other)
  Sender: FDA-Public Use
  Company Number: FR-ROCHE-370702

PATIENT
  Sex: Male

DRUGS (5)
  1. RIBAVIRIN [Suspect]
     Route: 065
     Dates: start: 19990901, end: 20000401
  2. INTERFERON ALFA [Suspect]
     Route: 065
     Dates: start: 19990901
  3. STAVUDINE [Concomitant]
     Dates: start: 19950901
  4. DIDANOSINE [Concomitant]
     Dates: start: 19950901
  5. LAMIVUDINE [Concomitant]
     Dates: start: 19950901

REACTIONS (1)
  - MITOCHONDRIAL TOXICITY [None]
